FAERS Safety Report 12316724 (Version 1)
Quarter: 2016Q2

REPORT INFORMATION
  Report Type: Spontaneous
  Country: JP (occurrence: JP)
  Receive Date: 20160429
  Receipt Date: 20160429
  Transmission Date: 20160815
  Serious: Yes (Hospitalization)
  Sender: FDA-Public Use
  Company Number: JP-009507513-1604JPN018038

PATIENT
  Age: 72 Year
  Sex: Male

DRUGS (6)
  1. GLACTIV [Suspect]
     Active Substance: SITAGLIPTIN
     Dosage: 50 MG, ONCE A DAY
     Route: 048
     Dates: start: 20160223
  2. METFORMIN HYDROCHLORIDE. [Concomitant]
     Active Substance: METFORMIN HYDROCHLORIDE
     Dosage: UNK
  3. ULTIBRO [Concomitant]
     Active Substance: GLYCOPYRRONIUM\INDACATEROL
     Dosage: UNK
  4. FLIVAS [Concomitant]
     Active Substance: NAFTOPIDIL
     Dosage: UNK
  5. GLACTIV [Suspect]
     Active Substance: SITAGLIPTIN
     Indication: TYPE 2 DIABETES MELLITUS
     Dosage: 50 MG, ONCE A DAY
     Route: 048
     Dates: start: 20150924, end: 20160221
  6. GLIMICRON [Concomitant]
     Active Substance: GLICLAZIDE
     Dosage: UNK

REACTIONS (1)
  - Salivary gland neoplasm [Recovering/Resolving]

NARRATIVE: CASE EVENT DATE: 20160125
